FAERS Safety Report 9282551 (Version 3)
Quarter: 2013Q2

REPORT INFORMATION
  Report Type: Spontaneous
  Country: US (occurrence: US)
  Receive Date: 20130510
  Receipt Date: 20130605
  Transmission Date: 20140414
  Serious: Yes (Other)
  Sender: FDA-Public Use
  Company Number: CHPA2013US007825

PATIENT
  Age: 62 Year
  Sex: Female

DRUGS (4)
  1. BENEFIBER W/ WHEAT DEXTRIN [Suspect]
     Indication: SUPPLEMENTATION THERAPY
     Dosage: 2 DF, UNK
     Route: 048
  2. DEXILANT [Concomitant]
     Indication: GASTROOESOPHAGEAL REFLUX DISEASE
     Route: 048
  3. MIRALAX [Concomitant]
     Dosage: UNK
     Route: 048
  4. STOOL SOFTENER [Concomitant]
     Dosage: UNK

REACTIONS (8)
  - Multiple sclerosis [Not Recovered/Not Resolved]
  - Oesophageal spasm [Not Recovered/Not Resolved]
  - Muscle spasms [Not Recovered/Not Resolved]
  - Reflux gastritis [Recovered/Resolved]
  - Neuropathy peripheral [Not Recovered/Not Resolved]
  - Anxiety [Not Recovered/Not Resolved]
  - Therapeutic response unexpected [Unknown]
  - Underdose [Unknown]
